FAERS Safety Report 23242471 (Version 1)
Quarter: 2023Q4

REPORT INFORMATION
  Report Type: Spontaneous
  Country: DE (occurrence: DE)
  Receive Date: 20231129
  Receipt Date: 20231129
  Transmission Date: 20240110
  Serious: Yes (Other)
  Sender: FDA-Public Use
  Company Number: DE-MYLANLABS-2013014678

PATIENT
  Sex: Female

DRUGS (7)
  1. SERTRALINE [Suspect]
     Active Substance: SERTRALINE HYDROCHLORIDE
     Indication: Illusion
     Dosage: 200 MG, 1X/DAY FOR 13 MONTHS REGIMEN DOSE UNIT: MILLIGRAM
     Route: 065
     Dates: start: 2006, end: 200809
  2. SERTRALINE [Suspect]
     Active Substance: SERTRALINE HYDROCHLORIDE
     Indication: Depression
  3. FLUOXETINE HYDROCHLORIDE [Suspect]
     Active Substance: FLUOXETINE HYDROCHLORIDE
     Indication: Illusion
     Dosage: 20 MG, 1X/DAY FOR 5 MONTHS REGIMEN DOSE UNIT: MILLIGRAM
     Route: 065
     Dates: start: 2006, end: 200809
  4. FLUOXETINE HYDROCHLORIDE [Suspect]
     Active Substance: FLUOXETINE HYDROCHLORIDE
     Indication: Depression
  5. CITALOPRAM [Suspect]
     Active Substance: CITALOPRAM HYDROBROMIDE
     Indication: Depression
     Dosage: 20-30 MG/DAY FOR 6 MONTHS
     Route: 065
     Dates: start: 2006, end: 200809
  6. CITALOPRAM [Suspect]
     Active Substance: CITALOPRAM HYDROBROMIDE
     Indication: Illusion
  7. RISPERIDONE [Suspect]
     Active Substance: RISPERIDONE
     Indication: Illusion
     Dosage: 0.5-1.0 MG
     Route: 065
     Dates: start: 200810, end: 2008

REACTIONS (4)
  - Drug abuse [Unknown]
  - Drug ineffective for unapproved indication [Unknown]
  - Product use in unapproved indication [Unknown]
  - Weight increased [Unknown]
